FAERS Safety Report 13606014 (Version 10)
Quarter: 2018Q2

REPORT INFORMATION
  Report Type: Spontaneous
  Country: US (occurrence: US)
  Receive Date: 20170602
  Receipt Date: 20180614
  Transmission Date: 20180711
  Serious: No
  Sender: FDA-Public Use
  Company Number: US-PFIZER INC-2017240598

PATIENT
  Age: 70 Year
  Sex: Female
  Weight: 63.5 kg

DRUGS (10)
  1. IBRANCE [Suspect]
     Active Substance: PALBOCICLIB
     Indication: BREAST CANCER FEMALE
     Dosage: 125 MG, CYCLIC (1 CAPSULE/DAILY 1-21 DAYS)
     Route: 048
     Dates: start: 20170510
  2. IBRANCE [Suspect]
     Active Substance: PALBOCICLIB
     Dosage: 125 MG, CYCLIC (1 CAPSULE/DAILY 1-21 DAYS)
     Route: 048
  3. IBRANCE [Suspect]
     Active Substance: PALBOCICLIB
     Dosage: 100 MG, CYCLIC (1 CAPSULE/DAILY 1-21 DAYS)
     Route: 048
     Dates: start: 20170510
  4. IBRANCE [Suspect]
     Active Substance: PALBOCICLIB
     Dosage: 100 MG, CYCLIC (1 CAPSULE/DAILY 1-21 DAYS)
     Route: 048
     Dates: start: 20170510
  5. IBRANCE [Suspect]
     Active Substance: PALBOCICLIB
     Dosage: 125 MG, CYCLIC, (1 CAPSULE DAILY 1-21/DAYS 7/DAYS OFF)
     Route: 048
  6. IBRANCE [Suspect]
     Active Substance: PALBOCICLIB
     Dosage: 125 MG, CYCLIC (DAILY 21/28 DAYS)
     Route: 048
     Dates: start: 20170510
  7. IBRANCE [Suspect]
     Active Substance: PALBOCICLIB
     Dosage: 125 MG, CYCLIC (1 CAPSULE DAILY 1-21/DAYS 7/DAYS OFF)
     Route: 048
  8. IBRANCE [Suspect]
     Active Substance: PALBOCICLIB
     Dosage: 100 MG, CYCLIC (1 CAP / DAILY 1-21 DAYS)
     Route: 048
     Dates: start: 20170510
  9. IBRANCE [Suspect]
     Active Substance: PALBOCICLIB
     Dosage: 100 MG, CYCLIC [CAPSULE D1-21 Q 28 DAYS]
     Route: 048
     Dates: start: 20170510, end: 201805
  10. IBRANCE [Suspect]
     Active Substance: PALBOCICLIB
     Dosage: 100 MG, CYCLIC, (DAILY, 21 DAYS THEN 7 DAYS OFF)
     Route: 048
     Dates: start: 20170510

REACTIONS (23)
  - Myalgia [Unknown]
  - Neoplasm progression [Unknown]
  - Oral mucosal blistering [Unknown]
  - Rash [Not Recovered/Not Resolved]
  - Acne [Not Recovered/Not Resolved]
  - Memory impairment [Unknown]
  - Neck mass [Unknown]
  - Nausea [Unknown]
  - Insomnia [Unknown]
  - Nail disorder [Unknown]
  - White blood cell count decreased [Unknown]
  - Alopecia [Unknown]
  - Weight decreased [Not Recovered/Not Resolved]
  - Vomiting [Unknown]
  - Fatigue [Unknown]
  - Chills [Unknown]
  - Decreased appetite [Unknown]
  - Ageusia [Unknown]
  - Dry skin [Not Recovered/Not Resolved]
  - Dysgeusia [Not Recovered/Not Resolved]
  - Dry mouth [Not Recovered/Not Resolved]
  - Hypoaesthesia oral [Not Recovered/Not Resolved]
  - Erythema [Unknown]

NARRATIVE: CASE EVENT DATE: 20170919
